FAERS Safety Report 15318429 (Version 1)
Quarter: 2018Q3

REPORT INFORMATION
  Report Type: Spontaneous
  Country: US (occurrence: US)
  Receive Date: 20180817
  Receipt Date: 20180817
  Transmission Date: 20181010
  Serious: Yes (Hospitalization)
  Sender: FDA-Public Use
  Company Number: None

PATIENT
  Sex: Female

DRUGS (22)
  1. CARNITOR SF SOL [Concomitant]
  2. SPIRONOLACTONE. [Concomitant]
     Active Substance: SPIRONOLACTONE
  3. CIPROFLOXACIN. [Concomitant]
     Active Substance: CIPROFLOXACIN
  4. IPRATROPIUM [Concomitant]
     Active Substance: IPRATROPIUM
  5. AMOX/K CLAV [Concomitant]
     Active Substance: AMOXICILLIN\CLAVULANATE POTASSIUM
  6. POTASSIUM CHLORIDE. [Concomitant]
     Active Substance: POTASSIUM CHLORIDE
  7. MONTELUKAST [Concomitant]
     Active Substance: MONTELUKAST SODIUM
  8. TOBRAMYCIN. [Suspect]
     Active Substance: TOBRAMYCIN
     Indication: CYSTIC FIBROSIS
     Route: 055
     Dates: start: 20160224
  9. PHENOBARBITAL. [Concomitant]
     Active Substance: PHENOBARBITAL
  10. VIOS MIS SYSTEM [Concomitant]
  11. POTASSIUM CHLORIDE. [Concomitant]
     Active Substance: POTASSIUM CHLORIDE
  12. MONTELUKAST [Concomitant]
     Active Substance: MONTELUKAST SODIUM
  13. PREDNISOLONE. [Concomitant]
     Active Substance: PREDNISOLONE
  14. FLUCONAZOLE. [Concomitant]
     Active Substance: FLUCONAZOLE
  15. BUDESONIDE. [Concomitant]
     Active Substance: BUDESONIDE
  16. LEVALBUTEROL. [Concomitant]
     Active Substance: LEVALBUTEROL
  17. ONFI [Concomitant]
     Active Substance: CLOBAZAM
  18. VIMPAT [Concomitant]
     Active Substance: LACOSAMIDE
  19. CLINDAMYCIN. [Concomitant]
     Active Substance: CLINDAMYCIN
  20. KITABIS PAK [Concomitant]
     Active Substance: TOBRAMYCIN
  21. ALBUTEROL. [Concomitant]
     Active Substance: ALBUTEROL
  22. TOBI [Concomitant]
     Active Substance: TOBRAMYCIN

REACTIONS (2)
  - Dyspnoea [None]
  - Throat tightness [None]
